FAERS Safety Report 19149937 (Version 1)
Quarter: 2021Q2

REPORT INFORMATION
  Report Type: Spontaneous
  Country: IN (occurrence: IN)
  Receive Date: 20210417
  Receipt Date: 20210417
  Transmission Date: 20210717
  Serious: Yes (Hospitalization, Other)
  Sender: FDA-Public Use
  Company Number: IN-STRIDES ARCOLAB LIMITED-2021SP004359

PATIENT
  Age: 28 Year
  Sex: Male

DRUGS (2)
  1. METHYLPREDNISOLONE. [Suspect]
     Active Substance: METHYLPREDNISOLONE
     Indication: ENDOCRINE OPHTHALMOPATHY
     Dosage: UNK, 1 WEEK (PULSE THERAPY)
     Route: 042
  2. TRIAMCINOLONE ACETONIDE. [Suspect]
     Active Substance: TRIAMCINOLONE ACETONIDE
     Indication: ENDOCRINE OPHTHALMOPATHY
     Dosage: 1 DOSAGE FORM, TOTAL (STEROID VIAL, INJECTION, INTRAORBITAL)
     Route: 031

REACTIONS (10)
  - Chorioretinal folds [Recovered/Resolved]
  - Eye abscess [Recovered/Resolved]
  - Product contamination microbial [Recovered/Resolved]
  - Exophthalmos [Recovered/Resolved]
  - Exposure via contaminated device [Recovered/Resolved]
  - Inadequate aseptic technique in use of product [Recovered/Resolved]
  - Optic nerve compression [Recovered/Resolved]
  - Pupillary reflex impaired [Recovered/Resolved]
  - Eye infection fungal [Recovered/Resolved]
  - Aspergillus infection [Recovered/Resolved]
